FAERS Safety Report 5268571-3 (Version None)
Quarter: 2007Q1

REPORT INFORMATION
  Report Type: 
  Country: None (occurrence: None)
  Receive Date: 20070313
  Receipt Date: 20070228
  Transmission Date: 20070707
  Serious: Yes (Other)
  Sender: FDA-Public Use
  Company Number: 15815

PATIENT
  Age: 25 Year
  Sex: Female

DRUGS (1)
  1. METHOTREXATE [Suspect]
     Indication: ABORTION INDUCED
     Dosage: 0.05 G/M2 TOTAL IM
     Route: 030

REACTIONS (3)
  - DRUG HYPERSENSITIVITY [None]
  - FOLLICULITIS [None]
  - TOXIC SKIN ERUPTION [None]
